FAERS Safety Report 15741664 (Version 1)
Quarter: 2018Q4

REPORT INFORMATION
  Report Type: Spontaneous
  Country: US (occurrence: US)
  Receive Date: 20181219
  Receipt Date: 20181219
  Transmission Date: 20190205
  Serious: Yes (Other)
  Sender: FDA-Public Use
  Company Number: US-IMPAX LABORATORIES, LLC-2017-IPXL-03544

PATIENT
  Age: 60 Year
  Sex: Female

DRUGS (1)
  1. COLESTIPOL HYDROCHLORIDE. [Suspect]
     Active Substance: COLESTIPOL HYDROCHLORIDE
     Indication: GALLBLADDER OPERATION
     Dosage: 1G, TWO TABLETS TWICE DAILY
     Route: 048

REACTIONS (1)
  - Arthritis [Recovered/Resolved]
